FAERS Safety Report 17425964 (Version 1)
Quarter: 2020Q1

REPORT INFORMATION
  Report Type: Spontaneous
  Country: SG (occurrence: SG)
  Receive Date: 20200217
  Receipt Date: 20200217
  Transmission Date: 20200409
  Serious: Yes (Death, Other)
  Sender: FDA-Public Use
  Company Number: SG-009507513-2002SGP004723

PATIENT
  Age: 66 Year
  Sex: Male

DRUGS (1)
  1. KEYTRUDA [Suspect]
     Active Substance: PEMBROLIZUMAB
     Dosage: 3 CYCLES

REACTIONS (3)
  - Malignant neoplasm progression [Fatal]
  - Pain [Unknown]
  - Peripheral swelling [Unknown]
